FAERS Safety Report 8868446 (Version 1)
Quarter: 2012Q4

REPORT INFORMATION
  Report Type: 
  Country: US (occurrence: US)
  Receive Date: 20121026
  Receipt Date: 20121026
  Transmission Date: 20130627
  Serious: No
  Sender: FDA-Public Use
  Company Number: US-AMGEN-USASP2012041642

PATIENT
  Sex: Female
  Weight: 82.54 kg

DRUGS (8)
  1. ENBREL [Suspect]
     Indication: PRODUCT USED FOR UNKNOWN INDICATION
     Dosage: 50 mg, qwk
     Route: 058
  2. PROTONIX [Concomitant]
     Dosage: 20 mg, UNK
  3. ULTRACET [Concomitant]
     Dosage: 37.5-325
  4. ZOLOFT [Concomitant]
     Dosage: 25 mg, UNK
  5. VICODIN [Concomitant]
     Dosage: 5-500 mg
  6. LEVBID [Concomitant]
     Dosage: 0.375 ER
  7. FLONASE [Concomitant]
     Dosage: SPR 0.05%
  8. SAVELLA [Concomitant]
     Dosage: 12.5 mg, UNK

REACTIONS (1)
  - Herpes virus infection [Unknown]
